FAERS Safety Report 4279378-8 (Version None)
Quarter: 2004Q1

REPORT INFORMATION
  Report Type: 
  Country: None (occurrence: None)
  Receive Date: 20040126
  Receipt Date: 20040126
  Transmission Date: 20041129
  Serious: Yes (Life-Threatening)
  Sender: FDA-Public Use
  Company Number: None

PATIENT
  Age: 53 Year
  Sex: Female
  Weight: 62.1428 kg

DRUGS (1)
  1. OMNICEF [Suspect]
     Indication: SINUSITIS
     Dosage: 300 MG 2 DAILY ORAL
     Route: 048
     Dates: start: 20040110, end: 20040118

REACTIONS (10)
  - BLOOD PRESSURE IMMEASURABLE [None]
  - CHEST DISCOMFORT [None]
  - DEPRESSION [None]
  - DYSGEUSIA [None]
  - DYSPNOEA [None]
  - EMOTIONAL DISTRESS [None]
  - HYPERVENTILATION [None]
  - MYALGIA [None]
  - SLEEP DISORDER [None]
  - THROAT TIGHTNESS [None]
